FAERS Safety Report 9951725 (Version 1)
Quarter: 2014Q1

REPORT INFORMATION
  Report Type: Report from Study
  Country: US (occurrence: US)
  Receive Date: 20140304
  Receipt Date: 20140304
  Transmission Date: 20141002
  Serious: No
  Sender: FDA-Public Use
  Company Number: US-ABBVIE-13P-163-1073576-00

PATIENT
  Age: 41 Year
  Sex: Male

DRUGS (3)
  1. HUMIRA [Suspect]
     Indication: PSORIATIC ARTHROPATHY
     Dates: start: 2011, end: 2013
  2. HUMIRA [Suspect]
  3. UNKNOWN STEROID CREAM [Concomitant]
     Indication: PSORIASIS

REACTIONS (3)
  - Circumstance or information capable of leading to medication error [Recovering/Resolving]
  - Psoriasis [Recovering/Resolving]
  - Arthralgia [Recovering/Resolving]
